FAERS Safety Report 15053809 (Version 1)
Quarter: 2018Q2

REPORT INFORMATION
  Report Type: Report from Study
  Country: US (occurrence: US)
  Receive Date: 20180622
  Receipt Date: 20180622
  Transmission Date: 20180711
  Serious: No
  Sender: FDA-Public Use
  Company Number: US-AMGEN-USASL2016053361

PATIENT
  Age: 14 Year
  Sex: Male

DRUGS (1)
  1. NPLATE [Suspect]
     Active Substance: ROMIPLOSTIM
     Indication: APLASTIC ANAEMIA
     Dosage: 4 MUG/KG, UNK
     Route: 065
     Dates: start: 20151214

REACTIONS (3)
  - Platelet count abnormal [Unknown]
  - Off label use [Unknown]
  - Drug ineffective [Unknown]
